FAERS Safety Report 5856170-1 (Version None)
Quarter: 2008Q3

REPORT INFORMATION
  Report Type: 
  Country: None (occurrence: None)
  Receive Date: 20080825
  Receipt Date: 20080815
  Transmission Date: 20090109
  Serious: Yes (Other)
  Sender: FDA-Public Use
  Company Number: US-AMGEN-QUU301768

PATIENT
  Sex: Female

DRUGS (1)
  1. ENBREL [Suspect]
     Indication: RHEUMATOID ARTHRITIS
     Route: 058
     Dates: start: 20050201

REACTIONS (5)
  - BLOOD CHOLESTEROL INCREASED [None]
  - CATHETERISATION CARDIAC [None]
  - EXCORIATION [None]
  - MUSCULOSKELETAL STIFFNESS [None]
  - ROAD TRAFFIC ACCIDENT [None]
